FAERS Safety Report 24576974 (Version 1)
Quarter: 2024Q4

REPORT INFORMATION
  Report Type: Spontaneous
  Country: US (occurrence: US)
  Receive Date: 20241104
  Receipt Date: 20241104
  Transmission Date: 20250114
  Serious: No
  Sender: BAYER HEALTHCARE PHARMACEUTICALS INC.
  Company Number: US-BAYER-2024A154361

PATIENT
  Age: 76 Year
  Sex: Female

DRUGS (23)
  1. KERENDIA [Suspect]
     Active Substance: FINERENONE
     Dosage: 10 MG, QD
     Route: 048
     Dates: start: 202307
  2. LEVOTHYROXINE SODIUM [Concomitant]
     Active Substance: LEVOTHYROXINE SODIUM
     Dosage: 100 MG
     Dates: start: 202310
  3. ACARBOSE [Concomitant]
     Active Substance: ACARBOSE
     Dosage: 20 MG
  4. ACETAMINOPHEN [Concomitant]
     Active Substance: ACETAMINOPHEN
     Dosage: 650 MG
  5. ALBUTEROL [Concomitant]
     Active Substance: ALBUTEROL
  6. ALLOPURINOL [Concomitant]
     Active Substance: ALLOPURINOL
     Dosage: 100 MG
  7. AMLODIPINE [Concomitant]
     Active Substance: AMLODIPINE BESYLATE
     Dosage: 10 MG
  8. CICLOPIROX OLAMINE [Concomitant]
     Active Substance: CICLOPIROX OLAMINE
  9. CLOBETASOL [Concomitant]
     Active Substance: CLOBETASOL
  10. COLCHICINE [Concomitant]
     Active Substance: COLCHICINE
     Dosage: 5 MG
  11. FERROUS SULFATE [Concomitant]
     Active Substance: FERROUS SULFATE
     Dosage: 325 MG, BID
     Route: 048
  12. FLUTICASONE PROPIONATE [Concomitant]
     Active Substance: FLUTICASONE PROPIONATE
     Dosage: 50 ?G
  13. GABAPENTIN [Concomitant]
     Active Substance: GABAPENTIN
     Dosage: 300 MG
  14. INDAPAMIDE [Concomitant]
     Active Substance: INDAPAMIDE
  15. TRESIBA [Concomitant]
     Active Substance: INSULIN DEGLUDEC
  16. LIDOCAINE [Concomitant]
     Active Substance: LIDOCAINE
  17. METHYL SALICYLATE OINTMENT COMPOUND [Concomitant]
  18. METOPROLOL [Concomitant]
     Active Substance: METOPROLOL
     Dosage: 100 MG, QD
  19. MONTELUKAST [Concomitant]
     Active Substance: MONTELUKAST
     Dosage: 10 MG, QD
  20. SEMAGLUTIDE [Concomitant]
     Active Substance: SEMAGLUTIDE
  21. SENNA [Concomitant]
     Active Substance: SENNA LEAF\SENNOSIDES\SENNOSIDES A AND B
     Dosage: 8.6 MG
  22. SUMATRIPTAN [Concomitant]
     Active Substance: SUMATRIPTAN
     Dosage: 1.2 MG, QD
  23. VITAMIN D3 [Concomitant]
     Active Substance: CHOLECALCIFEROL

REACTIONS (2)
  - Temperature intolerance [None]
  - Fatigue [None]
